FAERS Safety Report 6964005-9 (Version None)
Quarter: 2010Q3

REPORT INFORMATION
  Report Type: 
  Country: None (occurrence: None)
  Receive Date: 20100902
  Receipt Date: 20100902
  Transmission Date: 20110219
  Serious: Yes (Life-Threatening, Hospitalization, Other)
  Sender: FDA-Public Use
  Company Number: None

PATIENT
  Age: 41 Year
  Sex: Male
  Weight: 129.2752 kg

DRUGS (2)
  1. SERTRALINE HYDROCHLORIDE [Suspect]
     Indication: DEPRESSION
     Dosage: 1 BY MOUTH DAILY PO
     Route: 048
     Dates: start: 20080101, end: 20100822
  2. ZOLPIDEM [Suspect]
     Indication: SLEEP APNOEA SYNDROME
     Dosage: 1 BY MOUTH AS NEEDED PO
     Route: 048
     Dates: start: 20080101, end: 20100822

REACTIONS (6)
  - FAMILY STRESS [None]
  - LOSS OF EMPLOYMENT [None]
  - MALAISE [None]
  - MEMORY IMPAIRMENT [None]
  - SEXUAL ABUSE [None]
  - SUICIDE ATTEMPT [None]
